FAERS Safety Report 5930755-6 (Version None)
Quarter: 2008Q4

REPORT INFORMATION
  Report Type: 
  Country: None (occurrence: None)
  Receive Date: 20081003
  Receipt Date: 20080118
  Transmission Date: 20090506
  Serious: Yes (Hospitalization)
  Sender: FDA-Public Use
  Company Number: DYR2008001

PATIENT
  Age: 69 Year
  Sex: Female

DRUGS (5)
  1. SUNITINIB [Suspect]
     Indication: RENAL CELL CARCINOMA
     Dosage: TWO COURSES (CYCLES)
  2. ATENOLOL [Concomitant]
  3. TRIAMTERENE AND HYDROCHLOROTHIAZIDE [Concomitant]
  4. AMLODIPINE [Concomitant]
  5. MULTI-VITAMIN [Concomitant]

REACTIONS (5)
  - EOSINOPHILIA [None]
  - LEUKOCYTURIA [None]
  - PROTEINURIA [None]
  - RENAL IMPAIRMENT [None]
  - TUBULOINTERSTITIAL NEPHRITIS [None]
